FAERS Safety Report 10052837 (Version 1)
Quarter: 2014Q2

REPORT INFORMATION
  Report Type: Spontaneous
  Country: US (occurrence: US)
  Receive Date: 20140402
  Receipt Date: 20140402
  Transmission Date: 20141212
  Serious: Yes (Hospitalization, Other)
  Sender: FDA-Public Use
  Company Number: US-BAXTER-2014BAX015673

PATIENT
  Sex: Male

DRUGS (2)
  1. DIANEAL LOW CALCIUM [Suspect]
     Indication: PERITONEAL DIALYSIS
     Route: 033
     Dates: start: 2012
  2. DIANEAL LOW CALCIUM [Suspect]
     Route: 033

REACTIONS (5)
  - Anaemia [Recovering/Resolving]
  - Unevaluable event [Not Recovered/Not Resolved]
  - Blood albumin decreased [Recovering/Resolving]
  - Hypophagia [Recovering/Resolving]
  - Blood potassium decreased [Recovering/Resolving]
